FAERS Safety Report 4636315-1 (Version None)
Quarter: 2005Q2

REPORT INFORMATION
  Report Type: 
  Country: None (occurrence: None)
  Receive Date: 20050415
  Receipt Date: 20040909
  Transmission Date: 20051028
  Serious: No
  Sender: FDA-Public Use
  Company Number: US-BRISTOL-MYERS SQUIBB COMPANY-12696522

PATIENT
  Age: 60 Year
  Sex: Male

DRUGS (7)
  1. PARAPLATIN [Suspect]
     Indication: LUNG NEOPLASM MALIGNANT
     Dosage: GIVEN OVER 30 MINUTES
     Route: 042
     Dates: start: 20040907, end: 20040907
  2. TAXOL [Concomitant]
     Indication: LUNG NEOPLASM MALIGNANT
     Route: 042
     Dates: start: 20040907, end: 20040907
  3. RADIATION THERAPY [Concomitant]
     Indication: LUNG NEOPLASM MALIGNANT
  4. DEXAMETHASONE [Concomitant]
     Indication: PREMEDICATION
     Route: 048
     Dates: start: 20040907, end: 20040907
  5. DEXAMETHASONE [Concomitant]
     Route: 042
     Dates: start: 20040907, end: 20040907
  6. DIPHENHYDRAMINE HCL [Concomitant]
     Indication: PREMEDICATION
     Route: 042
     Dates: start: 20040907, end: 20040907
  7. FAMOTIDINE [Concomitant]
     Indication: PREMEDICATION
     Route: 040
     Dates: start: 20040907, end: 20040907

REACTIONS (3)
  - FLUSHING [None]
  - PRURITUS [None]
  - SENSATION OF FOREIGN BODY [None]
